FAERS Safety Report 9133200 (Version 1)
Quarter: 2013Q1

REPORT INFORMATION
  Report Type: Report from Study
  Country: DE (occurrence: DE)
  Receive Date: 20130301
  Receipt Date: 20130301
  Transmission Date: 20140127
  Serious: Yes (Hospitalization)
  Sender: FDA-Public Use
  Company Number: DE-ABBOTT-13P-062-1054849-00

PATIENT
  Age: 51 Year
  Sex: Female
  Weight: 67 kg

DRUGS (4)
  1. HUMIRA [Suspect]
     Indication: CROHN^S DISEASE
     Route: 058
     Dates: start: 20110104, end: 201208
  2. SULFASALAZINE [Concomitant]
     Indication: CROHN^S DISEASE
  3. PREDNISOLONE [Concomitant]
     Indication: CROHN^S DISEASE
     Dosage: 30-15 MG DAILY
  4. ARCOXIA [Concomitant]
     Indication: CROHN^S DISEASE
     Dates: start: 2012

REACTIONS (1)
  - Intestinal fistula [Unknown]
